FAERS Safety Report 24606501 (Version 2)
Quarter: 2024Q4

REPORT INFORMATION
  Report Type: Report from Study
  Country: US (occurrence: US)
  Receive Date: 20241112
  Receipt Date: 20241213
  Transmission Date: 20250115
  Serious: Yes (Hospitalization, Other)
  Sender: BRISTOL-MYERS SQUIBB COMPANY
  Company Number: US-BRISTOL-MYERS SQUIBB COMPANY-2024-157165

PATIENT
  Age: 65 Year
  Sex: Female

DRUGS (7)
  1. REVLIMID [Suspect]
     Active Substance: LENALIDOMIDE
     Indication: Plasma cell myeloma
     Route: 048
     Dates: start: 20221130, end: 20240911
  2. REVLIMID [Suspect]
     Active Substance: LENALIDOMIDE
     Indication: Illness
     Dosage: DAILY FOR 21 DAYS WITH 7 DAYS OFF
     Route: 048
     Dates: start: 20221130
  3. ASPIRIN [Concomitant]
     Active Substance: ASPIRIN
     Indication: Product used for unknown indication
  4. ALBUTEROL SULFATE [Concomitant]
     Active Substance: ALBUTEROL SULFATE
     Indication: Product used for unknown indication
  5. NOVOLIN R [Concomitant]
     Active Substance: INSULIN HUMAN
     Indication: Product used for unknown indication
     Dosage: 100/ML VIAL
  6. NOVOLIN R [Concomitant]
     Active Substance: INSULIN HUMAN
     Indication: Product used for unknown indication
  7. VITAMINS [Concomitant]
     Active Substance: VITAMINS
     Indication: Product used for unknown indication
     Dosage: DAILY VITAMIN FORMULA

REACTIONS (12)
  - Peripheral swelling [Recovered/Resolved]
  - Infection [Not Recovered/Not Resolved]
  - Neuromyopathy [Recovering/Resolving]
  - Anaemia [Unknown]
  - Shock [Unknown]
  - Gait inability [Unknown]
  - Laboratory test abnormal [Unknown]
  - Toxicity to various agents [Recovered/Resolved]
  - Gastrooesophageal reflux disease [Unknown]
  - Gout [Unknown]
  - Loss of consciousness [Unknown]
  - Syncope [Unknown]

NARRATIVE: CASE EVENT DATE: 20230101
